FAERS Safety Report 8935144 (Version 1)
Quarter: 2012Q4

REPORT INFORMATION
  Report Type: 
  Country: CA (occurrence: CA)
  Receive Date: 20121129
  Receipt Date: 20121129
  Transmission Date: 20130627
  Serious: Yes (Disabling)
  Sender: FDA-Public Use
  Company Number: CA-ASTRAZENECA-2012SE88460

PATIENT
  Age: 69 Year
  Sex: Female

DRUGS (14)
  1. CRESTOR [Suspect]
     Route: 048
  2. ALLOPURINOL [Concomitant]
     Route: 048
  3. COSOPT [Concomitant]
     Dosage: 2%/0.5% OPH DPS
     Route: 065
  4. DOXAZOSIN [Concomitant]
     Route: 065
  5. ELTROXIN [Concomitant]
     Route: 048
  6. FERROUS GLUCONATE [Concomitant]
     Route: 048
  7. FUROSEMIDE [Concomitant]
     Route: 048
  8. HYDRALAZINE [Concomitant]
     Route: 048
  9. INSULIN NPH [Concomitant]
     Route: 065
  10. INSULIN TORONTO [Concomitant]
     Route: 065
  11. MULTIVITAMINE(S) [Concomitant]
     Route: 065
  12. PLAVIX [Concomitant]
     Route: 048
  13. POTASSIUM CHLORIDE [Concomitant]
     Route: 065
  14. VITAMIN D [Concomitant]
     Route: 065

REACTIONS (5)
  - Fall [Unknown]
  - Gait disturbance [Unknown]
  - Oropharyngeal pain [Unknown]
  - Osteoarthritis [Unknown]
  - Swollen tongue [Unknown]
